FAERS Safety Report 8480191-6 (Version None)
Quarter: 2012Q2

REPORT INFORMATION
  Report Type: 
  Country: None (occurrence: None)
  Receive Date: 20120629
  Receipt Date: 20120628
  Transmission Date: 20120825
  Serious: Yes (Hospitalization)
  Sender: FDA-Public Use
  Company Number: IT-MERCK-1206USA04998

PATIENT
  Age: 72 Year
  Sex: Female

DRUGS (1)
  1. FOSAMAX PLUS D [Suspect]
     Indication: OSTEOPOROSIS
     Route: 048
     Dates: start: 20120401, end: 20120610

REACTIONS (3)
  - ACCOMMODATION DISORDER [None]
  - EYE PAIN [None]
  - OCULAR HYPERAEMIA [None]
